FAERS Safety Report 9324716 (Version 2)
Quarter: 2013Q2

REPORT INFORMATION
  Report Type: Spontaneous
  Country: US (occurrence: None)
  Receive Date: 20130529
  Receipt Date: 20130604
  Transmission Date: 20140414
  Serious: Yes (Hospitalization)
  Sender: FDA-Public Use
  Company Number: 2013-187

PATIENT
  Age: 55 Year
  Sex: Female
  Weight: 71.2 kg

DRUGS (5)
  1. PRIALT [Suspect]
     Indication: POST LAMINECTOMY SYNDROME
     Dosage: 0.05 UNK, ONCE/ HOUR
     Route: 037
     Dates: start: 20130116, end: 201305
  2. PRIALT [Suspect]
     Indication: PAIN
     Dosage: 0.05 UNK, ONCE/ HOUR
     Route: 037
     Dates: start: 20130116, end: 201305
  3. OXYCONTIN (OXYCODONE HYDROCHLORIDE) [Suspect]
  4. COREG (CARVEDILOL) [Concomitant]
  5. ATIVAN (LORAZEPAM) [Concomitant]

REACTIONS (7)
  - Overdose [None]
  - Dysarthria [None]
  - Hypersomnia [None]
  - Unresponsive to stimuli [None]
  - Drug abuse [None]
  - Toxicity to various agents [None]
  - Wrong technique in drug usage process [None]
